FAERS Safety Report 15044659 (Version 4)
Quarter: 2022Q3

REPORT INFORMATION
  Report Type: Spontaneous
  Country: US (occurrence: US)
  Receive Date: 20180621
  Receipt Date: 20220930
  Transmission Date: 20221027
  Serious: Yes (Hospitalization, Other)
  Sender: FDA-Public Use
  Company Number: US-ELI_LILLY_AND_COMPANY-US201806004984

PATIENT
  Sex: Male
  Weight: 109 kg

DRUGS (1)
  1. ZYPREXA [Suspect]
     Active Substance: OLANZAPINE
     Indication: Bipolar disorder
     Dosage: UNK UNK, DAILY
     Route: 048
     Dates: start: 2003, end: 2004

REACTIONS (7)
  - Cardiac disorder [Not Recovered/Not Resolved]
  - Pulmonary oedema [Not Recovered/Not Resolved]
  - End stage renal disease [Not Recovered/Not Resolved]
  - Haemothorax [Unknown]
  - Weight increased [Recovered/Resolved]
  - Diabetes mellitus [Not Recovered/Not Resolved]
  - Secretion discharge [Unknown]

NARRATIVE: CASE EVENT DATE: 20070101
